FAERS Safety Report 10294381 (Version 1)
Quarter: 2014Q3

REPORT INFORMATION
  Report Type: Spontaneous
  Country: US (occurrence: US)
  Receive Date: 20140710
  Receipt Date: 20140710
  Transmission Date: 20150326
  Serious: No
  Sender: FDA-Public Use
  Company Number: US-PURDUE-USA-2014-0110351

PATIENT
  Age: 75 Year
  Sex: Female

DRUGS (3)
  1. BUTRANS [Suspect]
     Active Substance: BUPRENORPHINE
     Dosage: 5 MCG/HR, WEEKLY
     Route: 062
     Dates: start: 201206, end: 201207
  2. BUTRANS [Suspect]
     Active Substance: BUPRENORPHINE
     Dosage: 10 MCG/HR, WEEKLY
     Route: 062
     Dates: start: 201207, end: 201211
  3. BUTRANS [Suspect]
     Active Substance: BUPRENORPHINE
     Indication: RHEUMATOID ARTHRITIS
     Dosage: 20 MCG/HR, WEEKLY
     Route: 062
     Dates: start: 201211

REACTIONS (2)
  - Drug ineffective [Recovered/Resolved]
  - Application site vesicles [Not Recovered/Not Resolved]

NARRATIVE: CASE EVENT DATE: 201211
